FAERS Safety Report 19904759 (Version 1)
Quarter: 2021Q3

REPORT INFORMATION
  Report Type: Spontaneous
  Country: FR (occurrence: FR)
  Receive Date: 20210930
  Receipt Date: 20210930
  Transmission Date: 20211014
  Serious: Yes (Life-Threatening)
  Sender: FDA-Public Use
  Company Number: FR-TEVA-2021-FR-1958436

PATIENT
  Age: 70 Year
  Sex: Male
  Weight: 124 kg

DRUGS (15)
  1. CLOPIDOGREL (CHLORHYDRATE DE) [Suspect]
     Active Substance: CLOPIDOGREL HYDROCHLORIDE
     Indication: CARDIOVASCULAR EVENT PROPHYLAXIS
     Dosage: 150 MG , THERAPY START DATE : ASKU
     Route: 048
     Dates: end: 20210819
  2. BISOPROLOL (FUMARATE DE) [Concomitant]
     Active Substance: BISOPROLOL FUMARATE
     Dosage: 5 MG ,THERAPY START DATE : ASKU
     Route: 048
     Dates: end: 20210819
  3. VANCOMYCINE [Concomitant]
     Active Substance: VANCOMYCIN
     Dosage: 4 G
     Route: 042
     Dates: start: 20210802, end: 20210811
  4. RIFAMPICINE [Concomitant]
     Active Substance: RIFAMPIN
     Dosage: 1.2 MG
     Route: 042
     Dates: start: 20210802, end: 202108
  5. METRONIDAZOLE. [Concomitant]
     Active Substance: METRONIDAZOLE
     Dosage: UNKNOWN
     Route: 048
     Dates: start: 202108, end: 202108
  6. PARACETAMOL [Concomitant]
     Active Substance: ACETAMINOPHEN
     Dosage: 1 DF , THERAPY START DATE : ASKU
     Route: 048
     Dates: end: 20210819
  7. DIFFU K, GELULE [Concomitant]
     Active Substance: POTASSIUM CHLORIDE
     Dosage: 1.2 G , THERAPY START DATE : ASKU
     Route: 048
     Dates: end: 20210819
  8. ECONAZOLE. [Concomitant]
     Active Substance: ECONAZOLE NITRATE
     Dosage: 2 DF , THERAPY START DATE : ASKU
     Route: 003
     Dates: end: 20210819
  9. CHLORHYDRATE DE PYRIDOXINE [Concomitant]
     Active Substance: PYRIDOXINE
     Dosage: 50 MG , THERAPY START DATE : ASKU
     Route: 048
     Dates: end: 20210819
  10. ALLOPURINOL. [Concomitant]
     Active Substance: ALLOPURINOL
     Dosage: 200 MG , THERAPY START DATE : ASKU
     Route: 048
     Dates: end: 20210819
  11. CHLORHYDRATE DE THIAMINE [Concomitant]
     Dosage: 250 MG , THERAPY START DATE : ASKU
     Route: 048
     Dates: end: 20210819
  12. GENTAMICINE [Concomitant]
     Active Substance: GENTAMICIN
     Dosage: UNKNOWN
     Route: 042
     Dates: start: 20210802, end: 20210805
  13. LINEZOLIDE [Concomitant]
     Active Substance: LINEZOLID
     Dosage: UNKNOWN
     Route: 048
     Dates: start: 202108, end: 20210816
  14. LOVENOX [Interacting]
     Active Substance: ENOXAPARIN SODIUM
     Indication: THROMBOSIS PROPHYLAXIS
     Dosage: 18000 IU
     Route: 058
     Dates: start: 202108, end: 20210819
  15. ATORVASTATINE [Concomitant]
     Active Substance: ATORVASTATIN
     Dosage: 40 MG , THERAPY START DATE : ASKU
     Route: 048
     Dates: end: 20210819

REACTIONS (2)
  - Drug interaction [Recovered/Resolved]
  - Shock haemorrhagic [Recovered/Resolved]

NARRATIVE: CASE EVENT DATE: 20210819
